FAERS Safety Report 9362141 (Version 3)
Quarter: 2014Q1

REPORT INFORMATION
  Report Type: Report from Study
  Country: US (occurrence: US)
  Receive Date: 20130621
  Receipt Date: 20140213
  Transmission Date: 20141002
  Serious: Yes (Hospitalization, Other)
  Sender: FDA-Public Use
  Company Number: US-US-EMD SERONO, INC.-7218869

PATIENT
  Age: 75 Year
  Sex: Female

DRUGS (3)
  1. REBIF [Suspect]
     Indication: MULTIPLE SCLEROSIS
     Route: 058
     Dates: start: 20021129
  2. CARTIA XT                          /00489701/ [Concomitant]
     Indication: MITRAL VALVE PROLAPSE
  3. COZAAR [Concomitant]
     Indication: MITRAL VALVE PROLAPSE

REACTIONS (3)
  - Plasma cell myeloma [Unknown]
  - Plasma cell myeloma [Not Recovered/Not Resolved]
  - Herpes zoster [Not Recovered/Not Resolved]
